FAERS Safety Report 10662128 (Version 1)
Quarter: 2014Q4

REPORT INFORMATION
  Report Type: Spontaneous
  Country: US (occurrence: None)
  Receive Date: 20141216
  Receipt Date: 20141216
  Transmission Date: 20150529
  Serious: Yes (Other)
  Sender: FDA-Public Use
  Company Number: 2013SA126538

PATIENT
  Age: 62 Year
  Sex: Female

DRUGS (5)
  1. AUBAGIO [Suspect]
     Active Substance: TERIFLUNOMIDE
     Indication: MULTIPLE SCLEROSIS
     Route: 048
     Dates: start: 20131123
  2. ANTIHYPERSENSIVES [Concomitant]
  3. AVONEX [Concomitant]
     Active Substance: INTERFERON BETA-1A
  4. BETASERON [Concomitant]
     Active Substance: INTERFERON BETA-1B
  5. COPAXONE [Concomitant]
     Active Substance: GLATIRAMER ACETATE

REACTIONS (12)
  - Neck pain [None]
  - Cataract [None]
  - Dizziness [None]
  - Anxiety [None]
  - Depression [None]
  - Dysarthria [None]
  - Mental disorder [None]
  - Pain [None]
  - Muscular weakness [None]
  - Therapeutic response unexpected [None]
  - Fatigue [None]
  - Cognitive disorder [None]
